FAERS Safety Report 8766042 (Version 1)
Quarter: 2012Q4

REPORT INFORMATION
  Report Type: 
  Country: TW (occurrence: TW)
  Receive Date: 20120904
  Receipt Date: 20120904
  Transmission Date: 20130627
  Serious: Yes (Other)
  Sender: FDA-Public Use
  Company Number: TW-ROCHE-1002801

PATIENT
  Age: 59 Year
  Sex: Male

DRUGS (4)
  1. EPOETIN BETA [Suspect]
     Indication: NEPHROGENIC ANAEMIA
     Route: 065
     Dates: start: 20080122, end: 20080510
  2. EPOETIN BETA [Suspect]
     Route: 065
     Dates: start: 20090507, end: 20110802
  3. MIRCERA [Suspect]
     Indication: NEPHROGENIC ANAEMIA
     Route: 065
     Dates: start: 20100506, end: 201008
  4. DARBEPOETIN ALFA [Suspect]
     Indication: NEPHROGENIC ANAEMIA
     Route: 065
     Dates: start: 20080515, end: 20090409

REACTIONS (2)
  - Haemoglobin decreased [Not Recovered/Not Resolved]
  - Melaena [Unknown]
